FAERS Safety Report 14141582 (Version 1)
Quarter: 2017Q4

REPORT INFORMATION
  Report Type: Spontaneous
  Country: US (occurrence: US)
  Receive Date: 20171029
  Receipt Date: 20171029
  Transmission Date: 20180321
  Serious: Yes (Life-Threatening, Disabling, Other)
  Sender: FDA-Public Use
  Company Number: None

PATIENT
  Age: 10 Year
  Sex: Male
  Weight: 33.75 kg

DRUGS (2)
  1. LEVETIRACETAM ER 500 MG [Suspect]
     Active Substance: LEVETIRACETAM
     Indication: EPILEPSY
     Route: 048
     Dates: start: 20171001, end: 20171004
  2. POTASSIUM BROMIDE [Concomitant]
     Active Substance: POTASSIUM BROMIDE

REACTIONS (5)
  - Seizure [None]
  - Product substitution issue [None]
  - Eating disorder [None]
  - Blindness [None]
  - Condition aggravated [None]

NARRATIVE: CASE EVENT DATE: 20171003
